FAERS Safety Report 4718709-9 (Version None)
Quarter: 2005Q3

REPORT INFORMATION
  Report Type: 
  Country: None (occurrence: None)
  Receive Date: 20050719
  Receipt Date: 20050705
  Transmission Date: 20060218
  Serious: Yes (Hospitalization)
  Sender: FDA-Public Use
  Company Number: US_0507119786

PATIENT
  Age: 58 Year
  Sex: Female
  Weight: 94 kg

DRUGS (6)
  1. HUMATROPE [Suspect]
     Indication: GROWTH HORMONE DEFICIENCY
     Dosage: 0.5 MG DAY
     Dates: start: 20030701
  2. SYNTHROID [Concomitant]
  3. CORTEF (HYDROCORTISONE CIPIONATE) [Concomitant]
  4. DDAVP (DESMOPRESSIN ACETATE) [Concomitant]
  5. LIPITOR [Concomitant]
  6. LISINOPRIL (LISINOPRIL /00894001/) [Concomitant]

REACTIONS (17)
  - ABDOMINAL PAIN UPPER [None]
  - DIARRHOEA [None]
  - DUODENAL ULCER PERFORATION [None]
  - DUODENITIS [None]
  - FLATULENCE [None]
  - GALLBLADDER ENLARGEMENT [None]
  - GASTROENTERITIS [None]
  - HERNIA [None]
  - HYPERTENSION [None]
  - HYPOPITUITARISM [None]
  - MALAISE [None]
  - MENTAL STATUS CHANGES [None]
  - NAUSEA [None]
  - PEPTIC ULCER PERFORATION [None]
  - PYREXIA [None]
  - REFLUX OESOPHAGITIS [None]
  - VOMITING [None]
